FAERS Safety Report 9198018 (Version 1)
Quarter: 2013Q1

REPORT INFORMATION
  Report Type: Spontaneous
  Country: US (occurrence: US)
  Receive Date: 20130328
  Receipt Date: 20130328
  Transmission Date: 20140127
  Serious: Yes (Hospitalization, Other)
  Sender: FDA-Public Use
  Company Number: US-ACTAVIS-2013-04979

PATIENT
  Age: 29 Year
  Sex: Male

DRUGS (10)
  1. METHOTREXATE [Suspect]
     Indication: POST TRANSPLANT LYMPHOPROLIFERATIVE DISORDER
     Dosage: 2 MG, UNK, INTRAVENTRICULAR ON DAYS 4,6,8 OF BOTH CHEMOTHERAPEUTIC CYCLES
     Route: 065
  2. METHOTREXATE [Suspect]
     Dosage: 9.6 G/M2, UNKNOWN, ON DAY 3, 2ND CYCLE
     Route: 042
  3. METHOTREXATE [Suspect]
     Dosage: 8 G/M2, UNKNOWN, ON DAY 3, 1ST CYCLE
     Route: 042
  4. CYTARABINE [Suspect]
     Indication: POST TRANSPLANT LYMPHOPROLIFERATIVE DISORDER
     Dosage: 15 MG, UNK, INTRAVENTRICULAR ON DAYS 4,6,8, OF 1ST AND 2ND IMMUNO-CHEMOTHERAPEUTIC CYCLES
     Route: 065
  5. HYDROCORTISONE ACETATE [Suspect]
     Indication: POST TRANSPLANT LYMPHOPROLIFERATIVE DISORDER
     Dosage: 15 MG, UNKNOWN, INTRAVENTRICULAR ON DAYS 4,6,8, OF 1ST AND 2ND IMMUNO-CHEMOTHERAPEUTIC CYCLES
     Route: 065
  6. DEXAMETHASONE (WATSON LABORATORIES) [Suspect]
     Indication: POST TRANSPLANT LYMPHOPROLIFERATIVE DISORDER
     Dosage: 5 MG/M2, BID, ON DAYS 3-10 OF 1ST AND 2ND IMMUNO-CHEMOTHERAPEUTIC CYCLES
     Route: 048
  7. CYCLOPHOSPHAMIDE [Suspect]
     Indication: POST TRANSPLANT LYMPHOPROLIFERATIVE DISORDER
     Dosage: 250 MG/M2, BID, ON DAYS 4,5 AND 6 OF THE 2ND IMMUNO-CHEMOTHERAPEUTIC CYCLE
     Route: 042
  8. CALCIUM FOLINATE [Suspect]
     Indication: POST TRANSPLANT LYMPHOPROLIFERATIVE DISORDER
     Dosage: 15 MG/M2, QID, ON DAY 4 OF 1ST AND 2ND UIMMUNO-CHEMOTHERAPEUTIC CYCLES
     Route: 042
  9. RITUXIMAB [Suspect]
     Indication: POST TRANSPLANT LYMPHOPROLIFERATIVE DISORDER
     Dosage: 375 MG/M2, UNKNOWN, ON DAYS 1 AND 3 OF 1ST AND 2ND IMMUNO-CHEMOTHERAPIC CYCLES
     Route: 042
  10. RITUXIMAB [Suspect]
     Dosage: 25 MG, UNKNOWN, INTRAVENTRICULAR, ON 1ST DAY OF 1ST AND 2ND IMMUNO-CMEHOTHERAPEUTIC CYCLES
     Route: 065

REACTIONS (6)
  - Transplant rejection [Unknown]
  - Nausea [Unknown]
  - Pyrexia [Unknown]
  - Neutropenia [Unknown]
  - Clostridium difficile colitis [Unknown]
  - Giardiasis [Unknown]
